FAERS Safety Report 19158876 (Version 1)
Quarter: 2021Q2

REPORT INFORMATION
  Report Type: Spontaneous
  Country: US (occurrence: US)
  Receive Date: 20210420
  Receipt Date: 20210420
  Transmission Date: 20210717
  Serious: Yes (Other)
  Sender: FDA-Public Use
  Company Number: US-FRESENIUS KABI-FK202103934

PATIENT
  Age: 64 Year
  Sex: Male

DRUGS (3)
  1. BLEOMYCIN [Suspect]
     Active Substance: BLEOMYCIN SULFATE
     Indication: SEMINOMA
     Dosage: (BEP) CHEMOTHERAPY 4 WEEKS EARLIER
     Route: 065
  2. CISPLATIN. [Concomitant]
     Active Substance: CISPLATIN
     Indication: SEMINOMA
     Dosage: (BEP) CHEMOTHERAPY 4 WEEKS EARLIER
     Route: 065
  3. ETOPOSIDE. [Concomitant]
     Active Substance: ETOPOSIDE
     Indication: SEMINOMA
     Dosage: (BEP) CHEMOTHERAPY 4 WEEKS EARLIER
     Route: 065

REACTIONS (3)
  - Pulmonary toxicity [Unknown]
  - Nail pigmentation [Not Recovered/Not Resolved]
  - Flagellate dermatitis [Recovered/Resolved]
